FAERS Safety Report 25275705 (Version 1)
Quarter: 2025Q2

REPORT INFORMATION
  Report Type: Spontaneous
  Country: US (occurrence: US)
  Receive Date: 20250507
  Receipt Date: 20250507
  Transmission Date: 20250717
  Serious: No
  Sender: CIPLA
  Company Number: US-CIPLA LTD.-2024US04550

PATIENT

DRUGS (9)
  1. TOPIRAMATE [Suspect]
     Active Substance: TOPIRAMATE
     Indication: Migraine
     Dosage: 1 DOSAGE FORM, QD FOR 2 WEEKS (60^S)
     Route: 048
     Dates: start: 20240429
  2. VENLAFAXINE [Concomitant]
     Active Substance: VENLAFAXINE HYDROCHLORIDE
     Indication: Migraine
     Dosage: 1 DOSAGE FORM, QD (225 QD)
     Route: 065
     Dates: start: 2019
  3. VENLAFAXINE [Concomitant]
     Active Substance: VENLAFAXINE HYDROCHLORIDE
     Route: 065
     Dates: start: 2023
  4. EMGALITY [Concomitant]
     Active Substance: GALCANEZUMAB-GNLM
     Indication: Migraine
     Route: 065
     Dates: start: 2023
  5. GABAPENTIN [Concomitant]
     Active Substance: GABAPENTIN
     Indication: Sleep disorder
     Route: 065
     Dates: start: 2023
  6. GABAPENTIN [Concomitant]
     Active Substance: GABAPENTIN
     Indication: Migraine
  7. CLINDAMYCIN [Concomitant]
     Active Substance: CLINDAMYCIN
     Indication: Acne
     Route: 065
     Dates: start: 2012
  8. NATURE MADE CALCIUM MAGNESIUM ZINC [Concomitant]
     Indication: Hypovitaminosis
     Route: 065
     Dates: start: 2023
  9. COPPER-CONTAINING INTRAUTERINE DEVICE (IUD) [Concomitant]
     Active Substance: COPPER
     Indication: Product used for unknown indication
     Route: 065
     Dates: start: 202402

REACTIONS (4)
  - Heart rate increased [Unknown]
  - Drug hypersensitivity [Unknown]
  - Feeling hot [Recovered/Resolved]
  - Pruritus [Not Recovered/Not Resolved]

NARRATIVE: CASE EVENT DATE: 20240429
